FAERS Safety Report 7853296-8 (Version None)
Quarter: 2011Q3

REPORT INFORMATION
  Report Type: 
  Country: None (occurrence: None)
  Receive Date: 20110915
  Receipt Date: 20110314
  Transmission Date: 20111222
  Serious: Yes (Disabling)
  Sender: FDA-Public Use
  Company Number: 2011027731

PATIENT
  Sex: Female
  Weight: 119.296 kg

DRUGS (2)
  1. PRIVIGEN [Suspect]
  2. PRIVIGEN [Suspect]
     Indication: IMMUNODEFICIENCY COMMON VARIABLE
     Dosage: SEE IMAGE
     Route: 042
     Dates: start: 20110114, end: 20110211

REACTIONS (8)
  - NAUSEA [None]
  - PHOTOPHOBIA [None]
  - MENINGITIS ASEPTIC [None]
  - BODY TEMPERATURE INCREASED [None]
  - FATIGUE [None]
  - VOMITING [None]
  - HEADACHE [None]
  - MUSCULOSKELETAL STIFFNESS [None]
